FAERS Safety Report 5154784-8 (Version None)
Quarter: 2006Q4

REPORT INFORMATION
  Report Type: 
  Country: None (occurrence: None)
  Receive Date: 20061115
  Receipt Date: 20061115
  Transmission Date: 20070319
  Serious: Yes (Other)
  Sender: FDA-Public Use
  Company Number: None

PATIENT
  Sex: Male

DRUGS (1)
  1. ACETAMINOPHEN [Suspect]
     Indication: HEADACHE
     Dosage: 2 - 500 MG CAPLETS   PRN   ORAL (DURATION: 3 OCCASIONS)
     Route: 048

REACTIONS (5)
  - BURNING SENSATION [None]
  - NAUSEA [None]
  - NO THERAPEUTIC RESPONSE [None]
  - OESOPHAGEAL PAIN [None]
  - STOMACH DISCOMFORT [None]
